FAERS Safety Report 6662591-X (Version None)
Quarter: 2010Q1

REPORT INFORMATION
  Report Type: 
  Country: None (occurrence: None)
  Receive Date: 20100329
  Receipt Date: 20100312
  Transmission Date: 20100710
  Serious: Yes (Other)
  Sender: FDA-Public Use
  Company Number: 2010000869

PATIENT
  Age: 70 Year
  Sex: Male

DRUGS (3)
  1. TARCEVA [Suspect]
     Indication: PANCREATIC CARCINOMA
     Dosage: (150 MG), ORAL
     Route: 048
     Dates: end: 20100201
  2. ISOSORBIDE DINITRATE [Concomitant]
  3. UNSPECIFIED DRUG [Concomitant]

REACTIONS (3)
  - AGGRESSION [None]
  - MANIA [None]
  - MENTAL DISORDER [None]
